FAERS Safety Report 5659700-8 (Version None)
Quarter: 2008Q1

REPORT INFORMATION
  Report Type: 
  Country: None (occurrence: None)
  Receive Date: 20080311
  Receipt Date: 20070626
  Transmission Date: 20080703
  Serious: No
  Sender: FDA-Public Use
  Company Number: US-BAYER-200712039BCC

PATIENT
  Age: 56 Year
  Sex: Female
  Weight: 63 kg

DRUGS (9)
  1. ALEVE [Suspect]
     Indication: ARTHRALGIA
     Dosage: TOTAL DAILY DOSE: 220 MG  UNIT DOSE: 220 MG
     Route: 048
     Dates: start: 20070625
  2. UNKNOWN DIURETIC [Concomitant]
  3. BETA BLOCKER [Concomitant]
  4. CLONAZEPAM [Concomitant]
  5. NASONEX [Concomitant]
  6. FLOVENT [Concomitant]
  7. UNKNOWN BLOOD PRESSURE MEDICATION [Concomitant]
  8. XOPENEX [Concomitant]
  9. PEPCID AC [Concomitant]

REACTIONS (1)
  - ABDOMINAL PAIN UPPER [None]
